FAERS Safety Report 8559556-X (Version None)
Quarter: 2012Q3

REPORT INFORMATION
  Report Type: 
  Country: None (occurrence: None)
  Receive Date: 20120727
  Receipt Date: 20120727
  Transmission Date: 20120928
  Serious: No
  Sender: FDA-Public Use
  Company Number: None

PATIENT
  Age: 79 Year
  Sex: Female
  Weight: 84.8226 kg

DRUGS (1)
  1. RECLAST [Suspect]
     Indication: OSTEOPENIA

REACTIONS (4)
  - INFLUENZA LIKE ILLNESS [None]
  - PRURITUS [None]
  - URTICARIA [None]
  - STOMATITIS [None]
